FAERS Safety Report 25219224 (Version 2)
Quarter: 2025Q2

REPORT INFORMATION
  Report Type: Spontaneous
  Country: US (occurrence: US)
  Receive Date: 20250421
  Receipt Date: 20250428
  Transmission Date: 20250717
  Serious: No
  Sender: ABBVIE
  Company Number: US-ABBVIE-6227087

PATIENT
  Age: 75 Year

DRUGS (1)
  1. RESTASIS [Suspect]
     Active Substance: CYCLOSPORINE
     Indication: Product used for unknown indication
     Route: 047

REACTIONS (2)
  - Migraine [Unknown]
  - Product lot number issue [Unknown]

NARRATIVE: CASE EVENT DATE: 20250101
